FAERS Safety Report 23708462 (Version 1)
Quarter: 2024Q2

REPORT INFORMATION
  Report Type: Spontaneous
  Country: US (occurrence: None)
  Receive Date: 20240403
  Receipt Date: 20240403
  Transmission Date: 20240716
  Serious: No
  Sender: FDA-Public Use
  Company Number: None

PATIENT
  Age: 65 Year
  Sex: Female

DRUGS (2)
  1. OJJAARA [Suspect]
     Active Substance: MOMELOTINIB DIHYDROCHLORIDE MONOHYDRATE
     Indication: Myelofibrosis
     Dosage: 100 MG DAILY ORAL?
     Dates: start: 20230308
  2. Ojjaara [Concomitant]
     Dates: start: 20240308

REACTIONS (3)
  - Balance disorder [None]
  - Feeling abnormal [None]
  - Blood uric acid increased [None]

NARRATIVE: CASE EVENT DATE: 20240402
